FAERS Safety Report 7766860-1 (Version None)
Quarter: 2011Q3

REPORT INFORMATION
  Report Type: 
  Country: None (occurrence: None)
  Receive Date: 20110922
  Receipt Date: 20110916
  Transmission Date: 20111222
  Serious: Yes (Hospitalization, Other)
  Sender: FDA-Public Use
  Company Number: US-PFIZER INC-2011221369

PATIENT
  Sex: Female

DRUGS (3)
  1. PHENOBARBITAL [Concomitant]
     Indication: CONVULSION
     Dosage: UNK
  2. TEGRETOL [Concomitant]
     Indication: CONVULSION
     Dosage: UNK
  3. PHENYTOIN SODIUM [Suspect]
     Indication: CONVULSION
     Dosage: UNK

REACTIONS (1)
  - CONVULSION [None]
